FAERS Safety Report 8124794-7 (Version None)
Quarter: 2012Q1

REPORT INFORMATION
  Report Type: 
  Country: None (occurrence: None)
  Receive Date: 20120209
  Receipt Date: 20120131
  Transmission Date: 20120608
  Serious: Yes (Hospitalization)
  Sender: FDA-Public Use
  Company Number: FR-VERTEX PHARMACEUTICALS INC.-000000000000000036

PATIENT
  Sex: Male
  Weight: 69 kg

DRUGS (8)
  1. RIBAVIRIN [Concomitant]
     Indication: HEPATITIS C
     Dates: start: 20110927, end: 20111224
  2. ATAZANAVIR [Concomitant]
     Indication: HIV INFECTION
     Dates: start: 20060304
  3. PROPRANOLOL [Concomitant]
     Dates: start: 20110925
  4. INTERFERON ALFA [Concomitant]
     Indication: HEPATITIS C
     Dates: start: 20110927, end: 20111224
  5. HIV MEDICATION [Concomitant]
     Indication: HIV INFECTION
     Dates: start: 20111108
  6. VX-950 [Suspect]
     Indication: HEPATITIS C
     Dosage: DOSAGE FORM: TABLET
     Route: 048
     Dates: start: 20111025, end: 20111220
  7. TENOFOVIR [Concomitant]
     Indication: HIV INFECTION
     Dates: start: 20030208
  8. EMTRICITABINE [Concomitant]
     Indication: HIV INFECTION
     Dates: start: 20060304

REACTIONS (1)
  - DRUG RASH WITH EOSINOPHILIA AND SYSTEMIC SYMPTOMS [None]
